FAERS Safety Report 17102404 (Version 1)
Quarter: 2019Q4

REPORT INFORMATION
  Report Type: Spontaneous
  Country: US (occurrence: US)
  Receive Date: 20191202
  Receipt Date: 20191202
  Transmission Date: 20200122
  Serious: No
  Sender: FDA-Public Use
  Company Number: US-PTC THERAPEUTICS, INC.-US-2019PTC001313

PATIENT
  Sex: Male

DRUGS (4)
  1. EMFLAZA [Suspect]
     Active Substance: DEFLAZACORT
     Dosage: 0.9 ML, QD
     Route: 048
  2. EMFLAZA [Suspect]
     Active Substance: DEFLAZACORT
     Indication: MUSCULAR DYSTROPHY
     Dosage: 0.8 ML, QD
     Route: 048
     Dates: start: 20070616
  3. EMFLAZA [Suspect]
     Active Substance: DEFLAZACORT
     Dosage: 0.6 ML, QD
     Route: 048
  4. EMFLAZA [Suspect]
     Active Substance: DEFLAZACORT
     Dosage: 0.7 ML, QD
     Route: 048

REACTIONS (4)
  - Aggression [Unknown]
  - Abnormal behaviour [Recovered/Resolved]
  - Crying [Recovered/Resolved]
  - Myalgia [Recovered/Resolved]
